FAERS Safety Report 6929022-3 (Version None)
Quarter: 2010Q3

REPORT INFORMATION
  Report Type: 
  Country: None (occurrence: None)
  Receive Date: 20100817
  Receipt Date: 20100809
  Transmission Date: 20110219
  Serious: Yes (Life-Threatening, Hospitalization, Disabling, Other)
  Sender: FDA-Public Use
  Company Number: DE-ABBOTT-09P-062-0617090-00

PATIENT
  Sex: Female
  Weight: 56 kg

DRUGS (8)
  1. HUMIRA [Suspect]
     Indication: RHEUMATOID ARTHRITIS
     Dosage: EVERY TWO WEEKS
     Route: 058
     Dates: start: 20051201, end: 20090701
  2. PREDNISOLONE [Concomitant]
     Indication: RHEUMATOID ARTHRITIS
     Route: 048
     Dates: start: 20090101, end: 20090714
  3. PREDNISOLONE [Concomitant]
     Dates: start: 20090714
  4. BONIVA [Concomitant]
     Indication: OSTEOPOROSIS
  5. OMEPRAZOLE [Concomitant]
     Indication: PRODUCT USED FOR UNKNOWN INDICATION
     Route: 048
  6. VOLTAREN [Concomitant]
     Indication: PRODUCT USED FOR UNKNOWN INDICATION
  7. ACETAMINOPHEN [Concomitant]
     Indication: PRODUCT USED FOR UNKNOWN INDICATION
  8. DECORTIN [Concomitant]
     Indication: RHEUMATOID ARTHRITIS
     Route: 048

REACTIONS (26)
  - AREFLEXIA [None]
  - ARTHRALGIA [None]
  - ASTHENIA [None]
  - AXONAL NEUROPATHY [None]
  - BACK PAIN [None]
  - BLOOD CHOLINESTERASE DECREASED [None]
  - C-REACTIVE PROTEIN INCREASED [None]
  - LYMPHADENOPATHY [None]
  - MOBILITY DECREASED [None]
  - MUSCULOSKELETAL PAIN [None]
  - MYALGIA [None]
  - PARESIS [None]
  - PELVIC PAIN [None]
  - PERICARDIAL EFFUSION [None]
  - PERIPHERAL SENSORIMOTOR NEUROPATHY [None]
  - PNEUMONIA [None]
  - RESPIRATORY FAILURE [None]
  - RHEUMATOID NODULE [None]
  - SCIATICA [None]
  - SJOGREN'S SYNDROME [None]
  - SPONDYLITIS [None]
  - SYNOVECTOMY [None]
  - T-LYMPHOCYTE COUNT INCREASED [None]
  - TRANSAMINASES INCREASED [None]
  - VERTIGO [None]
  - WEIGHT DECREASED [None]
